FAERS Safety Report 9938140 (Version 1)
Quarter: 2014Q1

REPORT INFORMATION
  Report Type: Spontaneous
  Country: SE (occurrence: SE)
  Receive Date: 20140303
  Receipt Date: 20140303
  Transmission Date: 20141002
  Serious: Yes (Other)
  Sender: FDA-Public Use
  Company Number: SE-BRISTOL-MYERS SQUIBB COMPANY-20351540

PATIENT
  Age: 50 Year
  Sex: Female

DRUGS (1)
  1. ABILIFY TABS 10 MG [Suspect]

REACTIONS (4)
  - Eye disorder [Not Recovered/Not Resolved]
  - Weight increased [Not Recovered/Not Resolved]
  - Oedema [Not Recovered/Not Resolved]
  - Dry mouth [Not Recovered/Not Resolved]
